FAERS Safety Report 11999521 (Version 1)
Quarter: 2016Q1

REPORT INFORMATION
  Report Type: Spontaneous
  Country: DE (occurrence: DE)
  Receive Date: 20160204
  Receipt Date: 20160204
  Transmission Date: 20160526
  Serious: Yes (Other)
  Sender: FDA-Public Use
  Company Number: DE-DRREDDYS-GER/GER/16/0068094

PATIENT
  Age: 29 Year
  Sex: Female
  Weight: 62 kg

DRUGS (8)
  1. FEMIBION SCHWANGERSCHAFT 1 [Concomitant]
     Indication: PROPHYLAXIS OF NEURAL TUBE DEFECT
     Route: 048
     Dates: start: 20141023, end: 20150609
  2. PREDNISOLON [Concomitant]
     Active Substance: PREDNISOLONE
     Indication: COAGULOPATHY
     Route: 048
  3. VENLAFAXINE [Suspect]
     Active Substance: VENLAFAXINE HYDROCHLORIDE
     Indication: DEPRESSION
     Route: 048
     Dates: start: 20141023, end: 20150609
  4. TRENTAL [Suspect]
     Active Substance: PENTOXIFYLLINE
     Indication: COAGULOPATHY
     Route: 048
  5. DIAZEPAM. [Concomitant]
     Active Substance: DIAZEPAM
     Indication: DEPRESSION
     Route: 048
  6. CLEXANE 20 [Concomitant]
     Indication: COAGULOPATHY
     Route: 058
  7. ASS 100 [Concomitant]
     Active Substance: ASPIRIN
     Indication: COAGULOPATHY
     Route: 048
  8. EUTHYROX 50 [Concomitant]
     Indication: HYPOTHYROIDISM
     Route: 064
     Dates: start: 20141023, end: 20150609

REACTIONS (2)
  - Exposure during pregnancy [Unknown]
  - Premature rupture of membranes [Unknown]
